FAERS Safety Report 23720712 (Version 1)
Quarter: 2024Q2

REPORT INFORMATION
  Report Type: Report from Study
  Country: DE (occurrence: DE)
  Receive Date: 20240409
  Receipt Date: 20240409
  Transmission Date: 20240716
  Serious: Yes (Other)
  Sender: FDA-Public Use
  Company Number: DE-ABBVIE-5708744

PATIENT
  Sex: Male

DRUGS (2)
  1. CARBIDOPA\LEVODOPA [Suspect]
     Active Substance: CARBIDOPA\LEVODOPA
     Indication: Parkinson^s disease
     Dosage: MD: 5.5ML; CRT: 2.1 ML/H; ED: 2.1 ML.
     Route: 050
     Dates: start: 20220627
  2. CARBIDOPA\LEVODOPA [Suspect]
     Active Substance: CARBIDOPA\LEVODOPA

REACTIONS (4)
  - Unresponsive to stimuli [Not Recovered/Not Resolved]
  - Unevaluable event [Not Recovered/Not Resolved]
  - Gait disturbance [Unknown]
  - Therapeutic product effect incomplete [Unknown]
